FAERS Safety Report 9536278 (Version 1)
Quarter: 2013Q2

REPORT INFORMATION
  Report Type: Spontaneous
  Country: US (occurrence: None)
  Receive Date: 20130507
  Receipt Date: 20130507
  Transmission Date: 20140414
  Serious: No
  Sender: FDA-Public Use
  Company Number: PHEH2013US004534

PATIENT
  Age: 63 Year
  Sex: Female

DRUGS (11)
  1. AFINITOR (RAD) [Suspect]
     Route: 048
  2. EXEMESTANE (EXEMESTANE) [Concomitant]
  3. VAPRO (IRBESARTAN) [Concomitant]
  4. BYSTOLIC (NEBIVOLOL HYDROCHLORIDE) [Concomitant]
  5. ASPIRIN (ACETYLSALICYLIC ACID) [Concomitant]
  6. VITAMIN B12 (CYANOCOBALAMIN) [Concomitant]
  7. VITAMIN D (ERGOCALCIFEROL) [Concomitant]
  8. IBUPROFEN (IBUPROFEN) [Concomitant]
  9. BENADRYL (DIPHENHYDRAMINE HYDROCHLORIDE) [Concomitant]
  10. ZYRTEC (CETIRIZINE HYDROCHLORIDE) [Concomitant]
  11. CALCIUM (CALCIUM) [Concomitant]

REACTIONS (2)
  - Pneumonia [None]
  - Neoplasm [None]
